FAERS Safety Report 5165006-6 (Version None)
Quarter: 2006Q4

REPORT INFORMATION
  Report Type: 
  Country: None (occurrence: None)
  Receive Date: 20061205
  Receipt Date: 20061130
  Transmission Date: 20070319
  Serious: Yes (Other)
  Sender: FDA-Public Use
  Company Number: CH-BOEHRINGER INGELHEIM PHARMACEUTICALS, INC.-2006-DE-06390SI

PATIENT
  Age: 87 Year
  Sex: Male

DRUGS (5)
  1. PRADIF [Suspect]
     Route: 048
  2. PROSCAR [Suspect]
     Indication: BENIGN PROSTATIC HYPERPLASIA
  3. TOREM [Concomitant]
     Route: 048
  4. ASASANTINE [Concomitant]
     Dosage: STRENGTH AND DAILY DOSE: 25/200 MG
     Route: 048
  5. DISTRANEURIN [Concomitant]
     Route: 048

REACTIONS (3)
  - ANAEMIA [None]
  - NORMOCHROMIC NORMOCYTIC ANAEMIA [None]
  - THROMBOCYTOPENIA [None]
